FAERS Safety Report 10582935 (Version 1)
Quarter: 2014Q4

REPORT INFORMATION
  Report Type: Spontaneous
  Country: US (occurrence: US)
  Receive Date: 20141114
  Receipt Date: 20141114
  Transmission Date: 20150529
  Serious: Yes (Hospitalization, Other)
  Sender: FDA-Public Use
  Company Number: US-AMGEN-USASP2014087780

PATIENT
  Age: 47 Year
  Sex: Female

DRUGS (1)
  1. ENBREL [Suspect]
     Active Substance: ETANERCEPT
     Indication: RHEUMATOID ARTHRITIS
     Dosage: 50 MG, QWK
     Route: 065
     Dates: start: 2004

REACTIONS (11)
  - Medical device removal [Recovered/Resolved]
  - Musculoskeletal pain [Unknown]
  - Arthralgia [Unknown]
  - Peripheral swelling [Unknown]
  - Intervertebral disc protrusion [Recovered/Resolved]
  - Musculoskeletal stiffness [Unknown]
  - Gait disturbance [Unknown]
  - Acute kidney injury [Unknown]
  - Debridement [Recovered/Resolved]
  - Staphylococcal infection [Recovered/Resolved]
  - Pain in extremity [Unknown]

NARRATIVE: CASE EVENT DATE: 201211
